FAERS Safety Report 25452105 (Version 2)
Quarter: 2025Q3

REPORT INFORMATION
  Report Type: Spontaneous
  Country: JP (occurrence: JP)
  Receive Date: 20250618
  Receipt Date: 20250729
  Transmission Date: 20251020
  Serious: Yes (Hospitalization, Other)
  Sender: PURDUE
  Company Number: JP-NAPPMUNDI-GBR-2025-0126380

PATIENT
  Age: 60 Year
  Sex: Male

DRUGS (3)
  1. NORSPAN [Suspect]
     Active Substance: BUPRENORPHINE
     Indication: Pain
     Dosage: 5 MILLIGRAM, WEEKLY
     Dates: end: 20250611
  2. CALONAL [Concomitant]
     Active Substance: ACETAMINOPHEN
     Indication: Pain
     Route: 065
  3. TRAMCET [Concomitant]
     Active Substance: ACETAMINOPHEN\TRAMADOL
     Indication: Pain
     Route: 065

REACTIONS (3)
  - Suicidal ideation [Unknown]
  - Pain [Recovering/Resolving]
  - Bedridden [Unknown]
